FAERS Safety Report 21233592 (Version 1)
Quarter: 2022Q3

REPORT INFORMATION
  Report Type: Spontaneous
  Country: GB (occurrence: GB)
  Receive Date: 20220819
  Receipt Date: 20220819
  Transmission Date: 20221027
  Serious: Yes (Life-Threatening, Hospitalization, Other)
  Sender: FDA-Public Use
  Company Number: GB-MHRA-MED-202207290828265180-QJKGB

PATIENT
  Age: 43 Year
  Sex: Male
  Weight: 80 kg

DRUGS (15)
  1. LIDOCAINE [Suspect]
     Active Substance: LIDOCAINE
     Indication: Nerve block
     Dosage: UNK
     Route: 065
  2. FENTANYL [Suspect]
     Active Substance: FENTANYL
     Indication: General anaesthesia
     Route: 065
  3. EPINEPHRINE [Suspect]
     Active Substance: EPINEPHRINE
     Indication: Tachycardia
     Dosage: (SECOND DOSE)
     Route: 030
  4. EPINEPHRINE [Suspect]
     Active Substance: EPINEPHRINE
     Indication: Hypotension
     Dosage: (FIRST DOSE)
     Route: 030
  5. EPINEPHRINE [Suspect]
     Active Substance: EPINEPHRINE
     Indication: Erythema
  6. CHLORPHENIRAMINE MALEATE [Suspect]
     Active Substance: CHLORPHENIRAMINE MALEATE
     Indication: Product used for unknown indication
     Route: 042
  7. HYDROCORTISONE [Suspect]
     Active Substance: HYDROCORTISONE
     Indication: Eye swelling
     Route: 042
  8. HYDROCORTISONE [Suspect]
     Active Substance: HYDROCORTISONE
     Indication: Erythema of eyelid
  9. HYALASE [Suspect]
     Active Substance: HYALURONIDASE
     Indication: Nerve block
     Dosage: 8 ML, THERAPY END DATE : NASK
     Route: 065
     Dates: start: 20220726
  10. METARAMINOL [Suspect]
     Active Substance: METARAMINOL
     Indication: Tachycardia
     Route: 065
  11. PROPOFOL [Suspect]
     Active Substance: PROPOFOL
     Indication: Nerve block
     Route: 065
  12. PROPOFOL [Suspect]
     Active Substance: PROPOFOL
     Indication: Gonioscopy
  13. PROPOFOL [Suspect]
     Active Substance: PROPOFOL
     Indication: Sedation
  14. PROPOFOL [Suspect]
     Active Substance: PROPOFOL
     Indication: Trabeculectomy
  15. POVIDONE-IODINE [Suspect]
     Active Substance: POVIDONE-IODINE
     Indication: Medical procedure
     Dosage: THERAPY END DATE : NASK
     Route: 065
     Dates: start: 20220726

REACTIONS (15)
  - Erythema of eyelid [Recovering/Resolving]
  - Swelling of eyelid [Recovering/Resolving]
  - Asthenopia [Recovering/Resolving]
  - Eye swelling [Recovering/Resolving]
  - Tachycardia [Recovering/Resolving]
  - Erythema [Recovering/Resolving]
  - Hypotension [Recovering/Resolving]
  - Lip swelling [Recovering/Resolving]
  - Swollen tongue [Recovering/Resolving]
  - Rash [Recovering/Resolving]
  - Hypoaesthesia oral [Recovering/Resolving]
  - Paraesthesia oral [Recovering/Resolving]
  - Blood lactic acid increased [Recovering/Resolving]
  - Anaphylactic reaction [Recovered/Resolved]
  - Procedural pain [Recovering/Resolving]

NARRATIVE: CASE EVENT DATE: 20220726
